FAERS Safety Report 24800594 (Version 2)
Quarter: 2025Q1

REPORT INFORMATION
  Report Type: Spontaneous
  Country: US (occurrence: US)
  Receive Date: 20250102
  Receipt Date: 20250108
  Transmission Date: 20250408
  Serious: Yes (Other)
  Sender: ORGANON
  Company Number: US-ORGANON-O2412USA002783

PATIENT
  Age: 65 Year
  Sex: Male

DRUGS (1)
  1. SINEMET [Suspect]
     Active Substance: CARBIDOPA\LEVODOPA
     Indication: Parkinson^s disease
     Route: 048

REACTIONS (1)
  - Inflammatory bowel disease [Recovering/Resolving]
